FAERS Safety Report 5727212-9 (Version None)
Quarter: 2008Q2

REPORT INFORMATION
  Report Type: 
  Country: None (occurrence: None)
  Receive Date: 20080430
  Receipt Date: 20080422
  Transmission Date: 20081010
  Serious: Yes (Life-Threatening, Hospitalization)
  Sender: FDA-Public Use
  Company Number: TCI2008A01926

PATIENT
  Age: 76 Year
  Sex: Male

DRUGS (3)
  1. ACTOS [Suspect]
     Indication: DIABETES MELLITUS
     Dosage: 15 MG (15 MG, 1 IN 1 D) PER ORAL
     Route: 048
     Dates: start: 20080208, end: 20080303
  2. GLYBURIDE [Concomitant]
  3. NORVASC [Concomitant]

REACTIONS (11)
  - ACUTE RESPIRATORY DISTRESS SYNDROME [None]
  - BRONCHOALVEOLAR LAVAGE [None]
  - DECREASED APPETITE [None]
  - DYSPNOEA [None]
  - GENERALISED OEDEMA [None]
  - HYPOXIA [None]
  - NOCTURNAL DYSPNOEA [None]
  - PLEURAL EFFUSION [None]
  - PNEUMONITIS [None]
  - PYREXIA [None]
  - WEIGHT INCREASED [None]
